FAERS Safety Report 8957289 (Version 3)
Quarter: 2013Q2

REPORT INFORMATION
  Report Type: Report from Study
  Country: CA (occurrence: CA)
  Receive Date: 20121210
  Receipt Date: 20130422
  Transmission Date: 20140414
  Serious: Yes (Hospitalization)
  Sender: FDA-Public Use
  Company Number: CA-ABBOTT-12P-028-1016808-00

PATIENT
  Age: 57 Year
  Sex: Female
  Weight: 70 kg

DRUGS (8)
  1. HUMIRA [Suspect]
     Indication: CROHN^S DISEASE
     Route: 058
     Dates: start: 20081014, end: 20121116
  2. HUMIRA [Suspect]
     Route: 058
     Dates: start: 20130104
  3. SALOFRIK [Concomitant]
     Indication: CROHN^S DISEASE
     Route: 054
     Dates: start: 19990218
  4. PANTOLOC [Concomitant]
     Indication: GASTROOESOPHAGEAL REFLUX DISEASE
     Route: 048
     Dates: start: 1999
  5. TRENTAL [Concomitant]
     Indication: COLITIS MICROSCOPIC
     Route: 048
     Dates: start: 2009
  6. NORVASC [Concomitant]
     Indication: HYPERTENSION
     Route: 048
  7. BISOPROLOL [Concomitant]
     Indication: HYPERTENSION
     Route: 048
  8. CRESTOR [Concomitant]
     Indication: BLOOD CHOLESTEROL INCREASED
     Route: 048

REACTIONS (3)
  - Pleurisy [Recovered/Resolved]
  - Pneumonia [Recovered/Resolved]
  - Pleural effusion [Recovered/Resolved]
